FAERS Safety Report 12201130 (Version 1)
Quarter: 2016Q1

REPORT INFORMATION
  Report Type: Spontaneous
  Country: US (occurrence: US)
  Receive Date: 20160322
  Receipt Date: 20160322
  Transmission Date: 20160526
  Serious: No
  Sender: FDA-Public Use
  Company Number: US-SA-2015SA092451

PATIENT
  Age: 64 Year
  Sex: Female

DRUGS (1)
  1. NASACORT ALLERGY 24HR [Suspect]
     Active Substance: TRIAMCINOLONE ACETONIDE
     Dosage: DOSE:NASACORT 60 SPRAY, PATIENT SRART PRODUCT A MONTH AGO
     Route: 065

REACTIONS (2)
  - Cough [Unknown]
  - Rash [Unknown]
